FAERS Safety Report 4520251-5 (Version None)
Quarter: 2004Q4

REPORT INFORMATION
  Report Type: 
  Country: None (occurrence: None)
  Receive Date: 20041201
  Receipt Date: 20041201
  Transmission Date: 20050328
  Serious: Yes (Hospitalization)
  Sender: FDA-Public Use
  Company Number: None

PATIENT
  Age: 61 Year
  Sex: Male
  Weight: 85.7298 kg

DRUGS (16)
  1. SAMARIUM [Concomitant]
     Indication: PROSTATE CANCER
     Dosage: 1MCI/KG IV
     Route: 042
     Dates: start: 20040713
  2. SAMARIUM [Concomitant]
     Indication: PROSTATE CANCER
     Dosage: 1MCI/KG IV
     Route: 042
     Dates: start: 20041007
  3. ZOMETA [Suspect]
     Indication: PROSTATE CANCER
     Dosage: 4 MG IV
     Route: 042
     Dates: start: 20040716
  4. ZOMETA [Suspect]
     Indication: PROSTATE CANCER
     Dosage: 4 MG IV
     Route: 042
     Dates: start: 20040810
  5. ZOMETA [Suspect]
     Indication: PROSTATE CANCER
     Dosage: 4 MG IV
     Route: 042
     Dates: start: 20040907
  6. ZOMETA [Suspect]
     Indication: PROSTATE CANCER
     Dosage: 4 MG IV
     Route: 042
     Dates: start: 20041007
  7. ZOMETA [Suspect]
     Indication: PROSTATE CANCER
     Dosage: 4 MG IV
     Route: 042
     Dates: start: 20041103
  8. ZOMETA [Suspect]
     Indication: PROSTATE CANCER
     Dosage: 4 MG IV
     Route: 042
     Dates: start: 20041130
  9. OXYCONTIN [Concomitant]
  10. FLOMAX [Concomitant]
  11. RITALIN [Concomitant]
  12. ATIVAN [Concomitant]
  13. LEXAPRO [Concomitant]
  14. ATARAX [Concomitant]
  15. VALIUM [Concomitant]
  16. COMPAZINE [Concomitant]

REACTIONS (2)
  - CHEST PAIN [None]
  - DYSPNOEA [None]
